FAERS Safety Report 24624936 (Version 5)
Quarter: 2025Q3

REPORT INFORMATION
  Report Type: Spontaneous
  Country: EU (occurrence: EU)
  Receive Date: 20241115
  Receipt Date: 20250723
  Transmission Date: 20251021
  Serious: Yes (Other)
  Sender: SANDOZ
  Company Number: EU-PFR-202400043

PATIENT
  Age: 48 Year
  Sex: Female

DRUGS (33)
  1. METHYLPHENIDATE [Suspect]
     Active Substance: METHYLPHENIDATE
     Indication: Product used for unknown indication
     Route: 065
     Dates: end: 202506
  2. METHYLPHENIDATE [Suspect]
     Active Substance: METHYLPHENIDATE
     Route: 065
     Dates: end: 202506
  3. METHYLPHENIDATE [Suspect]
     Active Substance: METHYLPHENIDATE
     Indication: Product used for unknown indication
     Route: 065
  4. METHYLPHENIDATE [Suspect]
     Active Substance: METHYLPHENIDATE
     Dosage: 4 DF, ONE CAPSULE PER DAY
     Route: 065
     Dates: start: 202506
  5. METHYLPHENIDATE [Suspect]
     Active Substance: METHYLPHENIDATE
     Route: 065
     Dates: start: 202506
  6. RITALIN [Suspect]
     Active Substance: METHYLPHENIDATE HYDROCHLORIDE
     Route: 048
     Dates: end: 202310
  7. RITALIN [Suspect]
     Active Substance: METHYLPHENIDATE HYDROCHLORIDE
     Route: 065
     Dates: end: 20250108
  8. RITALIN [Suspect]
     Active Substance: METHYLPHENIDATE HYDROCHLORIDE
     Route: 065
     Dates: end: 202506
  9. RITALIN [Suspect]
     Active Substance: METHYLPHENIDATE HYDROCHLORIDE
     Indication: Hypersomnia
     Dosage: 160 MG, QD,40 MG, QID ( 4 CAPSULES OF  40MG, 4 TIMES A DAY.)
     Route: 065
     Dates: end: 2024
  10. RITALIN [Suspect]
     Active Substance: METHYLPHENIDATE HYDROCHLORIDE
     Route: 065
     Dates: end: 2024
  11. RITALIN [Suspect]
     Active Substance: METHYLPHENIDATE HYDROCHLORIDE
     Dosage: 4 DF, ONE CAPSULE PER DAY
     Route: 065
     Dates: start: 202506
  12. RITALIN [Suspect]
     Active Substance: METHYLPHENIDATE HYDROCHLORIDE
     Indication: Product used for unknown indication
     Route: 065
  13. RITALIN [Suspect]
     Active Substance: METHYLPHENIDATE HYDROCHLORIDE
     Route: 065
  14. METHYLPHENIDATE HYDROCHLORIDE [Suspect]
     Active Substance: METHYLPHENIDATE HYDROCHLORIDE
     Route: 048
     Dates: end: 202310
  15. METHYLPHENIDATE HYDROCHLORIDE [Suspect]
     Active Substance: METHYLPHENIDATE HYDROCHLORIDE
     Dosage: 4 CAPSULES 4 TIMES DAILY
     Route: 065
     Dates: start: 202502, end: 202506
  16. METHYLPHENIDATE HYDROCHLORIDE [Suspect]
     Active Substance: METHYLPHENIDATE HYDROCHLORIDE
     Dosage: 4 CAPSULES 4 TIMES DAILY
     Route: 065
     Dates: end: 20250108
  17. METHYLPHENIDATE HYDROCHLORIDE [Suspect]
     Active Substance: METHYLPHENIDATE HYDROCHLORIDE
     Route: 065
     Dates: end: 202502
  18. METHYLPHENIDATE HYDROCHLORIDE [Suspect]
     Active Substance: METHYLPHENIDATE HYDROCHLORIDE
     Dosage: 25 DF, QD,5 DOSAGE FORM (5 TIMES DAILY) 5QD (5 CAPSULES 5 TIMES DAILY)
     Route: 065
     Dates: end: 2024
  19. METHYLPHENIDATE HYDROCHLORIDE [Suspect]
     Active Substance: METHYLPHENIDATE HYDROCHLORIDE
     Indication: Hypersomnia
     Dosage: 25 DF, QD,5 DOSAGE FORM, 5QD (5 CAPSULES 5 TIMES DAILY)
     Route: 048
     Dates: end: 2024
  20. METHYLPHENIDATE HYDROCHLORIDE [Suspect]
     Active Substance: METHYLPHENIDATE HYDROCHLORIDE
     Dosage: ONE CAPSULE PER DAY
     Route: 065
     Dates: start: 202506
  21. METHYLPHENIDATE HYDROCHLORIDE [Suspect]
     Active Substance: METHYLPHENIDATE HYDROCHLORIDE
     Route: 065
  22. METHYLPHENIDATE HYDROCHLORIDE [Suspect]
     Active Substance: METHYLPHENIDATE HYDROCHLORIDE
     Indication: Hypersomnia
     Route: 048
     Dates: end: 20240822
  23. METHYLPHENIDATE HYDROCHLORIDE [Suspect]
     Active Substance: METHYLPHENIDATE HYDROCHLORIDE
     Route: 065
     Dates: end: 20250108
  24. METHYLPHENIDATE HYDROCHLORIDE [Suspect]
     Active Substance: METHYLPHENIDATE HYDROCHLORIDE
     Indication: Product used for unknown indication
     Dosage: 80 MG, QD,MORE THAN 80 MG, QD
     Route: 065
  25. METHYLPHENIDATE HYDROCHLORIDE [Suspect]
     Active Substance: METHYLPHENIDATE HYDROCHLORIDE
     Route: 065
     Dates: end: 2024
  26. METHYLPHENIDATE HYDROCHLORIDE [Suspect]
     Active Substance: METHYLPHENIDATE HYDROCHLORIDE
     Route: 065
  27. METHYLPHENIDATE HYDROCHLORIDE [Suspect]
     Active Substance: METHYLPHENIDATE HYDROCHLORIDE
     Route: 065
  28. METHYLPHENIDATE [Concomitant]
     Active Substance: METHYLPHENIDATE
     Indication: Product used for unknown indication
     Route: 065
  29. METHYLPHENIDATE [Concomitant]
     Active Substance: METHYLPHENIDATE
     Route: 065
  30. OXAZEPAM [Concomitant]
     Active Substance: OXAZEPAM
     Indication: Anxiety
     Dosage: 15 DF, QD,5 DOSAGE FORM, TID
     Route: 065
  31. OXAZEPAM [Concomitant]
     Active Substance: OXAZEPAM
     Dosage: 50 MG, 5 TIMES PER DAY
     Route: 065
     Dates: start: 202502
  32. ESCITALOPRAM OXALATE [Concomitant]
     Active Substance: ESCITALOPRAM OXALATE
     Indication: Depression
     Route: 065
  33. PALIPERIDONE PALMITATE [Concomitant]
     Active Substance: PALIPERIDONE PALMITATE
     Indication: Psychotic disorder
     Dosage: 1 DF, QMO
     Route: 065

REACTIONS (35)
  - Altered state of consciousness [Unknown]
  - Loss of consciousness [Unknown]
  - Drug dependence [Unknown]
  - Anhedonia [Unknown]
  - Malaise [Not Recovered/Not Resolved]
  - Fall [Unknown]
  - Head injury [Unknown]
  - Logorrhoea [Unknown]
  - Disorganised speech [Unknown]
  - Decreased interest [Unknown]
  - Contusion [Unknown]
  - Adverse event [Unknown]
  - Feeling abnormal [Unknown]
  - Emotional distress [Recovered/Resolved]
  - Prescribed overdose [Unknown]
  - Disturbance in attention [Unknown]
  - Muscle tightness [Unknown]
  - Pharmaceutical nomadism [Unknown]
  - Obsessive rumination [Unknown]
  - Therapeutic product effect increased [Unknown]
  - Mental disorder [Unknown]
  - Balance disorder [Unknown]
  - Intentional product misuse [Unknown]
  - Disorientation [Unknown]
  - Cerebral disorder [Not Recovered/Not Resolved]
  - Somnolence [Unknown]
  - Intentional overdose [Unknown]
  - Contraindicated product prescribed [Unknown]
  - Contraindicated product administered [Unknown]
  - Product prescribing issue [Unknown]
  - Product prescribing error [Unknown]
  - Drug effective for unapproved indication [Unknown]
  - Product dispensing issue [Unknown]
  - Off label use [Unknown]
  - Product use issue [Unknown]

NARRATIVE: CASE EVENT DATE: 20170101
